FAERS Safety Report 5877353-0 (Version None)
Quarter: 2008Q3

REPORT INFORMATION
  Report Type: 
  Country: None (occurrence: None)
  Receive Date: 20080908
  Receipt Date: 20080826
  Transmission Date: 20090109
  Serious: Yes (Hospitalization)
  Sender: FDA-Public Use
  Company Number: 08-001213

PATIENT
  Age: 55 Year
  Sex: Male

DRUGS (7)
  1. TACLONEX [Suspect]
     Indication: PSORIASIS
     Dosage: QD, TOPICAL
     Route: 061
     Dates: start: 20080617
  2. ADALIMUMAB(ADALIMUMAB) 80MG [Suspect]
     Indication: PSORIASIS
     Dosage: 80 MG, SUBCUTANEOUS
     Route: 058
     Dates: start: 20080617, end: 20080617
  3. DIPYRIDAMOLE [Concomitant]
  4. ACETYLSALICYLIC ACID SRT [Concomitant]
  5. SIMVASTATIN [Concomitant]
  6. VASERETIC [Concomitant]
  7. ISONIAZID (ISONIZID) [Concomitant]

REACTIONS (1)
  - ERYSIPELAS [None]
